FAERS Safety Report 12376932 (Version 1)
Quarter: 2016Q2

REPORT INFORMATION
  Report Type: Spontaneous
  Country: US (occurrence: US)
  Receive Date: 20160517
  Receipt Date: 20160517
  Transmission Date: 20160815
  Serious: No
  Sender: FDA-Public Use
  Company Number: US-MALLINCKRODT-T201503686

PATIENT
  Age: 54 Year
  Sex: Male
  Weight: 83 kg

DRUGS (4)
  1. H.P. ACTHAR [Suspect]
     Active Substance: CORTICOTROPIN
     Indication: RHEUMATOID ARTHRITIS
     Dosage: UNK
     Route: 058
     Dates: start: 201503, end: 201507
  2. OMEPRAZOLE. [Concomitant]
     Active Substance: OMEPRAZOLE
  3. TYLENOL [Concomitant]
     Active Substance: ACETAMINOPHEN
  4. SIMPONI [Concomitant]
     Active Substance: GOLIMUMAB
     Dosage: UNK

REACTIONS (5)
  - Abdominal distension [Not Recovered/Not Resolved]
  - Medication error [Recovered/Resolved]
  - Hypertension [Recovered/Resolved]
  - Vertigo [Recovered/Resolved]
  - Abdominal pain upper [Recovered/Resolved]

NARRATIVE: CASE EVENT DATE: 201503
